APPROVED DRUG PRODUCT: FRINDOVYX
Active Ingredient: CYCLOPHOSPHAMIDE
Strength: 500MG/ML (500MG/ML)
Dosage Form/Route: SOLUTION;INTRAVENOUS
Application: N210852 | Product #001
Applicant: AVYXA HOLDINGS LLC
Approved: Jun 7, 2023 | RLD: Yes | RS: Yes | Type: RX

PATENTS:
Patent 10849916 | Expires: Jul 13, 2035
Patent 11382923 | Expires: Dec 1, 2035